FAERS Safety Report 15419489 (Version 1)
Quarter: 2018Q3

REPORT INFORMATION
  Report Type: Spontaneous
  Country: US (occurrence: US)
  Receive Date: 20180924
  Receipt Date: 20180924
  Transmission Date: 20181010
  Serious: Yes (Other)
  Sender: FDA-Public Use
  Company Number: US-BAYER-2018-173767

PATIENT

DRUGS (1)
  1. BAYER ASPIRIN [Suspect]
     Active Substance: ASPIRIN
     Dosage: 1 DF, QD

REACTIONS (4)
  - Myocardial infarction [Unknown]
  - Cardiac disorder [Unknown]
  - Cerebrovascular accident [Unknown]
  - Incorrect drug administration duration [Unknown]
